FAERS Safety Report 22307226 (Version 1)
Quarter: 2023Q2

REPORT INFORMATION
  Report Type: Spontaneous
  Country: BE (occurrence: BE)
  Receive Date: 20230511
  Receipt Date: 20230511
  Transmission Date: 20230721
  Serious: Yes (Other)
  Sender: FDA-Public Use
  Company Number: BE-BRISTOL-MYERS SQUIBB COMPANY-2023-065948

PATIENT
  Age: 46 Year
  Sex: Male

DRUGS (1)
  1. NIVOLUMAB [Suspect]
     Active Substance: NIVOLUMAB
     Indication: Malignant melanoma stage III
     Dates: start: 202101

REACTIONS (3)
  - Thyroiditis [Unknown]
  - Hepatotoxicity [Unknown]
  - Hypophysitis [Unknown]

NARRATIVE: CASE EVENT DATE: 20210301
